FAERS Safety Report 6049798-X (Version None)
Quarter: 2009Q1

REPORT INFORMATION
  Report Type: 
  Country: None (occurrence: None)
  Receive Date: 20090121
  Receipt Date: 20080104
  Transmission Date: 20090719
  Serious: Yes (Other)
  Sender: FDA-Public Use
  Company Number: HQWYE189003JUN04

PATIENT
  Age: 54 Year
  Sex: Female
  Weight: 61.29 kg

DRUGS (2)
  1. PREMPRO [Suspect]
     Indication: MENOPAUSAL SYMPTOMS
  2. PREMARIN [Suspect]

REACTIONS (2)
  - BREAST CANCER IN SITU [None]
  - BREAST NEOPLASM [None]
